FAERS Safety Report 5538064-4 (Version None)
Quarter: 2007Q4

REPORT INFORMATION
  Report Type: 
  Country: None (occurrence: None)
  Receive Date: 20071207
  Receipt Date: 20071204
  Transmission Date: 20080405
  Serious: Yes (Other)
  Sender: FDA-Public Use
  Company Number: US-BOEHRINGER INGELHEIM PHARMACEUTICALS, INC.-2005-DE-00648GD

PATIENT
  Age: 69 Year
  Sex: Female

DRUGS (3)
  1. PERSANTIN AMPULE [Suspect]
     Indication: CARDIAC STRESS TEST
     Route: 042
  2. SALMETEROL [Concomitant]
     Indication: ASTHMA
     Route: 055
  3. FLUTICASONE PROPIONATE [Concomitant]
     Indication: ASTHMA

REACTIONS (6)
  - BRONCHOSPASM [None]
  - CHEST DISCOMFORT [None]
  - COUGH [None]
  - DYSPNOEA [None]
  - HYPOXIA [None]
  - WHEEZING [None]
